FAERS Safety Report 25414067 (Version 2)
Quarter: 2025Q3

REPORT INFORMATION
  Report Type: Report from Study
  Country: JP (occurrence: JP)
  Receive Date: 20250609
  Receipt Date: 20250810
  Transmission Date: 20251020
  Serious: Yes (Life-Threatening)
  Sender: ALEXION PHARMACEUTICALS
  Company Number: JP-ASTRAZENECA-230057984_013120_P_1

PATIENT
  Age: 79 Year
  Sex: Male
  Weight: 85 kg

DRUGS (23)
  1. DURVALUMAB [Suspect]
     Active Substance: DURVALUMAB
     Indication: Hepatocellular carcinoma
     Dosage: 1500 MILLIGRAM, UNK
     Dates: start: 20230417, end: 20230417
  2. TREMELIMUMAB [Suspect]
     Active Substance: TREMELIMUMAB
     Indication: Hepatocellular carcinoma
     Dates: start: 20230317, end: 20230317
  3. DAPAGLIFLOZIN [Concomitant]
     Active Substance: DAPAGLIFLOZIN
  4. VALSARTAN [Concomitant]
     Active Substance: VALSARTAN
  5. VALSARTAN [Concomitant]
     Active Substance: VALSARTAN
  6. REPAGLINIDE [Concomitant]
     Active Substance: REPAGLINIDE
  7. REPAGLINIDE [Concomitant]
     Active Substance: REPAGLINIDE
  8. TRULICITY [Concomitant]
     Active Substance: DULAGLUTIDE
  9. TRULICITY [Concomitant]
     Active Substance: DULAGLUTIDE
  10. PITAVASTATIN [Concomitant]
     Active Substance: PITAVASTATIN
  11. PITAVASTATIN [Concomitant]
     Active Substance: PITAVASTATIN
  12. ASPIRIN\VONOPRAZAN FUMARATE [Concomitant]
     Active Substance: ASPIRIN\VONOPRAZAN FUMARATE
  13. ASPIRIN\VONOPRAZAN FUMARATE [Concomitant]
     Active Substance: ASPIRIN\VONOPRAZAN FUMARATE
  14. DONEPEZIL HYDROCHLORIDE [Concomitant]
     Active Substance: DONEPEZIL HYDROCHLORIDE
  15. FUROSEMIDE [Concomitant]
     Active Substance: FUROSEMIDE
  16. FUROSEMIDE [Concomitant]
     Active Substance: FUROSEMIDE
  17. POTASSIUM ASPARTATE [Concomitant]
     Active Substance: POTASSIUM ASPARTATE
  18. POTASSIUM ASPARTATE [Concomitant]
     Active Substance: POTASSIUM ASPARTATE
  19. SAMSCA [Concomitant]
     Active Substance: TOLVAPTAN
  20. SAMSCA [Concomitant]
     Active Substance: TOLVAPTAN
  21. SPIRONOLACTONE [Concomitant]
     Active Substance: SPIRONOLACTONE
  22. SPIRONOLACTONE [Concomitant]
     Active Substance: SPIRONOLACTONE
  23. ARICEPT [Concomitant]
     Active Substance: DONEPEZIL HYDROCHLORIDE

REACTIONS (2)
  - Infusion related reaction [Recovering/Resolving]
  - Platelet count decreased [Unknown]

NARRATIVE: CASE EVENT DATE: 20230519
